FAERS Safety Report 11375298 (Version 1)
Quarter: 2015Q3

REPORT INFORMATION
  Report Type: Spontaneous
  Country: US (occurrence: US)
  Receive Date: 20150813
  Receipt Date: 20150813
  Transmission Date: 20151125
  Serious: No
  Sender: FDA-Public Use
  Company Number: US-TAKEDA-2013MPI000149

PATIENT
  Age: 59 Year
  Sex: Female

DRUGS (3)
  1. ATIVAN [Concomitant]
     Active Substance: LORAZEPAM
     Indication: PRODUCT USED FOR UNKNOWN INDICATION
     Dosage: 0.5 MG, UNK
  2. VELCADE [Suspect]
     Active Substance: BORTEZOMIB
     Indication: AMYLOIDOSIS
     Dosage: 2 MG, UNK
     Route: 058
  3. ZOFRAN [Concomitant]
     Active Substance: ONDANSETRON HYDROCHLORIDE
     Indication: PRODUCT USED FOR UNKNOWN INDICATION
     Dosage: 16 MG, UNK

REACTIONS (13)
  - Contusion [Unknown]
  - Diarrhoea [Unknown]
  - Eye swelling [Unknown]
  - Lacrimation increased [Unknown]
  - Fatigue [Unknown]
  - Oedema peripheral [Unknown]
  - Product use issue [Unknown]
  - Muscular weakness [Unknown]
  - Dry mouth [Unknown]
  - Dyspnoea [Unknown]
  - Eye pruritus [Unknown]
  - Syncope [Unknown]
  - Insomnia [Unknown]

NARRATIVE: CASE EVENT DATE: 20130404
